FAERS Safety Report 18799289 (Version 1)
Quarter: 2021Q1

REPORT INFORMATION
  Report Type: Report from Study
  Country: US (occurrence: US)
  Receive Date: 20210128
  Receipt Date: 20210128
  Transmission Date: 20210419
  Serious: Yes (Life-Threatening, Hospitalization)
  Sender: FDA-Public Use
  Company Number: US-RECORDATI RARE DISEASES-2105962

PATIENT
  Age: 58 Year
  Sex: Female

DRUGS (1)
  1. CYSTADANE [Suspect]
     Active Substance: BETAINE
     Indication: HOMOCYSTINURIA

REACTIONS (4)
  - Pneumonia [Unknown]
  - Product use issue [Unknown]
  - Urinary tract infection [Unknown]
  - Pain [Unknown]

NARRATIVE: CASE EVENT DATE: 20210115
